FAERS Safety Report 9331990 (Version 1)
Quarter: 2013Q2

REPORT INFORMATION
  Report Type: Spontaneous
  Country: RU (occurrence: None)
  Receive Date: 20130603
  Receipt Date: 20130603
  Transmission Date: 20140414
  Serious: No
  Sender: FDA-Public Use
  Company Number: 1305RUS014697

PATIENT
  Sex: Female

DRUGS (1)
  1. CEDAX (CEFTIBUTEN) ORAL SUSPENSION [Suspect]
     Indication: PHARYNGOTONSILLITIS

REACTIONS (2)
  - Dyspepsia [None]
  - Diarrhoea [None]
